FAERS Safety Report 4450328-4 (Version None)
Quarter: 2004Q3

REPORT INFORMATION
  Report Type: 
  Country: None (occurrence: None)
  Receive Date: 20040914
  Receipt Date: 20040830
  Transmission Date: 20050211
  Serious: No
  Sender: FDA-Public Use
  Company Number: 2003AP04017

PATIENT
  Age: 75 Year
  Sex: Male

DRUGS (3)
  1. ZOLADEX [Suspect]
     Indication: PROSTATE CANCER
     Dosage: 3.6 MG Q4WK SQ
     Route: 058
     Dates: start: 20031008
  2. ODYNE [Concomitant]
  3. CRAVIT [Concomitant]

REACTIONS (2)
  - INFECTION [None]
  - PNEUMONIA [None]
